FAERS Safety Report 4636388-6 (Version None)
Quarter: 2005Q2

REPORT INFORMATION
  Report Type: 
  Country: None (occurrence: None)
  Receive Date: 20050415
  Receipt Date: 20050216
  Transmission Date: 20051028
  Serious: Yes (Death, Life-Threatening)
  Sender: FDA-Public Use
  Company Number: JP-ROCHE-395674

PATIENT
  Age: 6 Year
  Sex: Female

DRUGS (34)
  1. MYCOPHENOLATE MOFETIL [Suspect]
     Indication: GRAFT VERSUS HOST DISEASE
     Route: 048
     Dates: start: 20040924
  2. MYCOPHENOLATE MOFETIL [Suspect]
     Route: 048
     Dates: start: 20041215, end: 20041227
  3. MYCOPHENOLATE MOFETIL [Suspect]
     Route: 048
     Dates: start: 20050102, end: 20050211
  4. CYCLOSPORINE [Suspect]
     Route: 048
     Dates: start: 20040903
  5. STEROID [Suspect]
     Dosage: FORM REPORTED AS ORAL FORMULATION.
     Route: 048
     Dates: start: 20041218, end: 20050212
  6. SOLU-MEDROL [Suspect]
     Route: 042
     Dates: start: 20041119, end: 20041121
  7. SOLU-MEDROL [Suspect]
     Dosage: DOSING AMOUNT REPORTED AS DECREASED.
     Route: 042
     Dates: start: 20041122, end: 20041206
  8. SOLU-MEDROL [Suspect]
     Route: 042
     Dates: start: 20041207, end: 20041213
  9. SOLU-MEDROL [Suspect]
     Route: 042
     Dates: start: 20041214, end: 20041222
  10. PANSPORIN [Suspect]
     Indication: ANTIBACTERIAL PROPHYLAXIS
     Route: 042
     Dates: start: 20041213, end: 20041215
  11. DENOSINE [Suspect]
     Indication: ANTIVIRAL PROPHYLAXIS
     Route: 042
     Dates: start: 20041220, end: 20050212
  12. MORPHINE HCL ELIXIR [Suspect]
     Indication: DRUG USE FOR UNKNOWN INDICATION
     Route: 065
  13. MEROPEN [Suspect]
     Indication: ANTIBACTERIAL PROPHYLAXIS
     Route: 042
     Dates: start: 20041213, end: 20041220
  14. MEROPEN [Suspect]
     Route: 042
     Dates: start: 20041227, end: 20050212
  15. GENTAMICIN SULFATE [Suspect]
     Indication: ANTIBACTERIAL PROPHYLAXIS
     Route: 042
     Dates: start: 20041220, end: 20041222
  16. VANCOMYCIN HYDROCHLORIDE [Suspect]
     Indication: ANTIBACTERIAL PROPHYLAXIS
     Route: 042
     Dates: start: 20041221, end: 20041227
  17. CEFOTIAM HYDROCHLORIDE [Concomitant]
     Route: 042
     Dates: start: 20041213, end: 20041215
  18. DIFLUCAN [Concomitant]
     Route: 042
     Dates: start: 20041216, end: 20041221
  19. FUNGIZONE [Concomitant]
  20. MICAFUNGIN [Concomitant]
  21. VFEND [Concomitant]
  22. CIPROFLOXACIN HYDROCHLORIDE [Concomitant]
  23. ITRIZOLE [Concomitant]
  24. PLATELETS [Concomitant]
  25. HANP [Concomitant]
  26. ANTHROBIN [Concomitant]
  27. LASIX [Concomitant]
  28. PROSTARMON F [Concomitant]
  29. VAGOSTIGMIN [Concomitant]
  30. ENEMA NOS [Concomitant]
  31. MINOCYCLINE HCL [Concomitant]
  32. NEUTROGIN [Concomitant]
  33. 1 CONCOMITANT DRUG [Concomitant]
     Dosage: DRUG REPORTED AS UNKNOWN DRUG (AGENTS AFFECTING METABOLISM NEC). FORM REPORTED AS ORAL FORMULATION.
     Route: 048
     Dates: start: 20041110, end: 20041207
  34. NEORAL [Concomitant]
     Route: 048
     Dates: start: 20041213, end: 20050212

REACTIONS (12)
  - ASPERGILLOSIS [None]
  - HAEMODIALYSIS [None]
  - HEPATIC FUNCTION ABNORMAL [None]
  - ILEUS PARALYTIC [None]
  - MULTI-ORGAN FAILURE [None]
  - PATHOGEN RESISTANCE [None]
  - PLATELET COUNT DECREASED [None]
  - RENAL FAILURE [None]
  - SEPSIS [None]
  - STENOTROPHOMONAS SEPSIS [None]
  - TRANSPLANT REJECTION [None]
  - WHITE BLOOD CELL COUNT DECREASED [None]
